FAERS Safety Report 10145083 (Version 1)
Quarter: 2014Q2

REPORT INFORMATION
  Report Type: Report from Study
  Country: US (occurrence: US)
  Receive Date: 20140501
  Receipt Date: 20140501
  Transmission Date: 20141212
  Serious: Yes (Other)
  Sender: FDA-Public Use
  Company Number: US-BIOGENIDEC-2014BI041278

PATIENT
  Age: 54 Year
  Sex: Female
  Weight: 86 kg

DRUGS (4)
  1. TYSABRI [Suspect]
     Indication: MULTIPLE SCLEROSIS
     Route: 042
     Dates: start: 20130627, end: 20140106
  2. BYSTOLIC [Concomitant]
     Route: 048
  3. CHLORTHALIDONE [Concomitant]
     Route: 048
     Dates: start: 20090205
  4. METHYLPHENIDATE ER [Concomitant]
     Route: 048
     Dates: start: 20120604

REACTIONS (3)
  - Surgery [Unknown]
  - Rash [Unknown]
  - Arthralgia [Unknown]
